FAERS Safety Report 12376240 (Version 1)
Quarter: 2016Q2

REPORT INFORMATION
  Report Type: Spontaneous
  Country: VE (occurrence: VE)
  Receive Date: 20160517
  Receipt Date: 20160517
  Transmission Date: 20160815
  Serious: Yes (Other)
  Sender: FDA-Public Use
  Company Number: PHHY2016VE066510

PATIENT
  Age: 61 Year
  Sex: Female

DRUGS (5)
  1. VALSARTAN. [Concomitant]
     Active Substance: VALSARTAN
     Indication: HYPERTENSION
     Dosage: 320 MG, QD
     Route: 065
     Dates: start: 201602
  2. DIOVAN HCT [Suspect]
     Active Substance: HYDROCHLOROTHIAZIDE\VALSARTAN
     Indication: HYPERTENSION
     Dosage: 1 DF, QD
     Route: 065
     Dates: start: 2009
  3. DIOVAN HCT [Suspect]
     Active Substance: HYDROCHLOROTHIAZIDE\VALSARTAN
     Indication: INFARCTION
  4. EUTIROX [Concomitant]
     Active Substance: LEVOTHYROXINE SODIUM
     Indication: THYROID DISORDER
     Dosage: 100 MG, QD
     Route: 065
     Dates: start: 1998
  5. CARDIOASPIRIN [Concomitant]
     Active Substance: ASPIRIN
     Indication: INFARCTION
     Dosage: 81 MG, QD
     Route: 065
     Dates: start: 2009

REACTIONS (11)
  - Dizziness [Unknown]
  - Headache [Unknown]
  - Nausea [Unknown]
  - Influenza like illness [Unknown]
  - Malaise [Unknown]
  - Fatigue [Unknown]
  - Respiratory disorder [Unknown]
  - Arrhythmia [Unknown]
  - Hyperhidrosis [Unknown]
  - Feeling abnormal [Unknown]
  - Blood pressure decreased [Unknown]

NARRATIVE: CASE EVENT DATE: 20160427
